FAERS Safety Report 8355199 (Version 3)
Quarter: 2015Q4

REPORT INFORMATION
  Report Type: Spontaneous
  Country: US (occurrence: US)
  Receive Date: 20120126
  Receipt Date: 20151016
  Transmission Date: 20160305
  Serious: Yes (Hospitalization)
  Sender: FDA-Public Use
  Company Number: US-BAYER-2012-006486

PATIENT
  Age: 17 Year
  Sex: Female

DRUGS (3)
  1. YASMIN [Suspect]
     Active Substance: DROSPIRENONE\ETHINYL ESTRADIOL
     Dosage: UNK
     Dates: start: 200604, end: 200606
  2. VICODIN [Concomitant]
     Active Substance: ACETAMINOPHEN\HYDROCODONE BITARTRATE
  3. YAZ [Suspect]
     Active Substance: DROSPIRENONE\ETHINYL ESTRADIOL
     Dosage: UNK
     Dates: start: 200604, end: 200606

REACTIONS (8)
  - Anxiety [None]
  - Injury [Recovered/Resolved]
  - Emotional distress [None]
  - Fear of disease [None]
  - Pain [Recovered/Resolved]
  - Anhedonia [None]
  - Pulmonary embolism [Recovered/Resolved]
  - Psychological trauma [None]

NARRATIVE: CASE EVENT DATE: 20060630
